FAERS Safety Report 10150092 (Version 2)
Quarter: 2014Q2

REPORT INFORMATION
  Report Type: Spontaneous
  Country: FR (occurrence: FR)
  Receive Date: 20140502
  Receipt Date: 20140516
  Transmission Date: 20141212
  Serious: Yes (Hospitalization, Disabling)
  Sender: FDA-Public Use
  Company Number: FR-SANOFI-AVENTIS-A02200900307

PATIENT
  Age: 75 Year
  Sex: Male

DRUGS (12)
  1. MONO-TILDIEM [Suspect]
     Indication: PRODUCT USED FOR UNKNOWN INDICATION
     Dosage: UNIT DOSE: 90 MG
     Route: 048
  2. LASILIX FAIBLE [Interacting]
     Indication: HYPERTENSION
     Route: 048
  3. NICORANDIL [Interacting]
     Indication: PRODUCT USED FOR UNKNOWN INDICATION
     Route: 048
  4. ALDACTONE [Interacting]
     Indication: PRODUCT USED FOR UNKNOWN INDICATION
     Route: 048
  5. DISCOTRINE [Interacting]
     Indication: PRODUCT USED FOR UNKNOWN INDICATION
     Dosage: UNIT DOSE: 10 MG
     Route: 048
  6. SIMVASTATIN [Concomitant]
     Indication: HYPERCHOLESTEROLAEMIA
     Dosage: UNIT DOSE: 40 MG
     Route: 048
  7. DIAMICRON [Concomitant]
     Indication: PRODUCT USED FOR UNKNOWN INDICATION
     Dosage: UNIT DOSE: 30 MG
     Route: 048
  8. ZOLPIDEM [Concomitant]
     Route: 065
  9. OMEPRAZOLE [Concomitant]
     Dosage: UNIT DOSE: 20 MG
     Route: 048
  10. CORTANCYL [Concomitant]
     Dosage: UNIT DOSE: 20 MG
     Route: 048
  11. KALEORID [Concomitant]
     Dosage: UNIT DOSE: 1000 MG
     Route: 048
  12. INIPOMP [Concomitant]
     Indication: DUODENITIS
     Route: 048

REACTIONS (3)
  - Fall [Recovering/Resolving]
  - Drug interaction [Unknown]
  - Tibia fracture [Recovering/Resolving]
